FAERS Safety Report 9364811 (Version 1)
Quarter: 2013Q2

REPORT INFORMATION
  Report Type: Spontaneous
  Country: BR (occurrence: BR)
  Receive Date: 20130624
  Receipt Date: 20130624
  Transmission Date: 20140414
  Serious: Yes (Other)
  Sender: FDA-Public Use
  Company Number: BR-ELI_LILLY_AND_COMPANY-BR201306003943

PATIENT
  Age: 61 Year
  Sex: Male

DRUGS (3)
  1. CIALIS [Suspect]
     Indication: ERECTILE DYSFUNCTION
     Dosage: 5 MG, QD
     Route: 048
     Dates: start: 20130531
  2. DIUPRESS [Concomitant]
     Dosage: 0.5 DF, EACH MORNING
     Route: 065
  3. LOSARTAN [Concomitant]
     Dosage: 50 MG, QD
     Route: 065

REACTIONS (6)
  - Arrhythmia [Unknown]
  - Blood pressure abnormal [Unknown]
  - Renal pain [Recovered/Resolved]
  - Stress [Unknown]
  - Emotional distress [Unknown]
  - Back pain [Recovered/Resolved]
